FAERS Safety Report 14803798 (Version 3)
Quarter: 2018Q2

REPORT INFORMATION
  Report Type: Spontaneous
  Country: US (occurrence: US)
  Receive Date: 20180425
  Receipt Date: 20180629
  Transmission Date: 20180711
  Serious: Yes (Other)
  Sender: FDA-Public Use
  Company Number: US-BRISTOL-MYERS SQUIBB COMPANY-BMS-2018-035329

PATIENT
  Age: 58 Year
  Sex: Male

DRUGS (1)
  1. OPDIVO [Suspect]
     Active Substance: NIVOLUMAB
     Indication: BLADDER TRANSITIONAL CELL CARCINOMA RECURRENT
     Dosage: 240 MG, Q2WK
     Route: 042
     Dates: start: 20180319, end: 20180416

REACTIONS (6)
  - Scrotal oedema [Recovering/Resolving]
  - Eosinophilic fasciitis [Recovering/Resolving]
  - Eosinophil count increased [Recovered/Resolved]
  - Swelling [Unknown]
  - Scrotal pain [Recovering/Resolving]
  - Oedema peripheral [Recovering/Resolving]

NARRATIVE: CASE EVENT DATE: 20180402
